FAERS Safety Report 5473842-1 (Version None)
Quarter: 2007Q4

REPORT INFORMATION
  Report Type: 
  Country: None (occurrence: None)
  Receive Date: 20071001
  Receipt Date: 20070919
  Transmission Date: 20080405
  Serious: Yes (Other)
  Sender: FDA-Public Use
  Company Number: FR-PFIZER INC-2007078926

PATIENT
  Sex: Male

DRUGS (4)
  1. SUTENT [Suspect]
     Indication: METASTATIC RENAL CELL CARCINOMA
     Dosage: DAILY DOSE:50MG
  2. OMEPRAZOLE [Concomitant]
  3. RABEPRAZOLE SODIUM [Concomitant]
  4. LOPERAMIDE HYDROCHLORIDE [Concomitant]

REACTIONS (3)
  - DYSPEPSIA [None]
  - GASTROINTESTINAL DISORDER [None]
  - OSTEOLYSIS [None]
